FAERS Safety Report 12816378 (Version 1)
Quarter: 2016Q4

REPORT INFORMATION
  Report Type: Spontaneous
  Country: US (occurrence: US)
  Receive Date: 20161006
  Receipt Date: 20161006
  Transmission Date: 20170207
  Serious: No
  Sender: FDA-Public Use
  Company Number: US-NOVEN PHARMACEUTICALS, INC.-US2015000776

PATIENT
  Age: 55 Year
  Sex: Female

DRUGS (1)
  1. COMBIPATCH [Suspect]
     Active Substance: ESTRADIOL\NORETHINDRONE ACETATE
     Indication: HOT FLUSH
     Dosage: 0.05/0.14 MG
     Route: 062

REACTIONS (11)
  - Incorrect product storage [Not Recovered/Not Resolved]
  - Oropharyngeal pain [Recovered/Resolved]
  - Palpitations [Not Recovered/Not Resolved]
  - Hyperhidrosis [Not Recovered/Not Resolved]
  - Yawning [Not Recovered/Not Resolved]
  - Drug administration error [Not Recovered/Not Resolved]
  - Disturbance in attention [Not Recovered/Not Resolved]
  - Depression [Not Recovered/Not Resolved]
  - Inappropriate schedule of drug administration [Unknown]
  - Chest discomfort [Recovered/Resolved]
  - Hot flush [Not Recovered/Not Resolved]

NARRATIVE: CASE EVENT DATE: 20150824
